FAERS Safety Report 8193879 (Version 2)
Quarter: 2012Q4

REPORT INFORMATION
  Report Type: 
  Country: US (occurrence: US)
  Receive Date: 20111021
  Receipt Date: 20120918
  Transmission Date: 20130627
  Serious: Yes (Other)
  Sender: FDA-Public Use
  Company Number: CHPA2011US14088

PATIENT
  Age: 71 Year
  Sex: Female

DRUGS (5)
  1. PREVACID 24HR 15MG [Suspect]
     Indication: GASTROOESOPHAGEAL REFLUX DISEASE
     Dosage: 30 mg, BID
     Route: 048
     Dates: start: 201108
  2. PREVACID 24HR 15MG [Suspect]
     Dosage: 15 mg a day
     Route: 048
  3. PREVACID 24HR 15MG [Suspect]
     Dosage: 15 mg BID
     Route: 048
  4. TRACLEER [Concomitant]
     Indication: PULMONARY ARTERIAL HYPERTENSION
     Dosage: 125 mg, BID
     Route: 048
  5. IMMUNOSUPPRESSANTS [Concomitant]

REACTIONS (9)
  - Pulmonary arterial hypertension [Recovered/Resolved]
  - Gastric polyps [Recovered/Resolved]
  - Bowel movement irregularity [Recovered/Resolved]
  - Gastric polypectomy [Recovered/Resolved]
  - Therapeutic response unexpected [Unknown]
  - Off label use [Unknown]
  - Prescribed overdose [Unknown]
  - Incorrect drug administration duration [Unknown]
  - Wrong technique in drug usage process [Unknown]
